FAERS Safety Report 4617677-8 (Version None)
Quarter: 2005Q1

REPORT INFORMATION
  Report Type: 
  Country: None (occurrence: None)
  Receive Date: 20050322
  Receipt Date: 20050308
  Transmission Date: 20050727
  Serious: Yes (Hospitalization)
  Sender: FDA-Public Use
  Company Number: 2004BI001261

PATIENT
  Age: 62 Year
  Sex: Female

DRUGS (6)
  1. AVONEX [Suspect]
     Indication: MULTIPLE SCLEROSIS
     Dosage: 30 UG;QW;IM
     Route: 030
     Dates: start: 20040430
  2. SEREVENT [Concomitant]
  3. FLOVENT [Concomitant]
  4. NEURONTIN [Concomitant]
  5. DARVON [Concomitant]
  6. QUINAMM [Concomitant]

REACTIONS (2)
  - ENCEPHALITIS VIRAL [None]
  - MENINGITIS [None]
